FAERS Safety Report 4489015-5 (Version None)
Quarter: 2004Q4

REPORT INFORMATION
  Report Type: 
  Country: None (occurrence: None)
  Receive Date: 20041029
  Receipt Date: 20041020
  Transmission Date: 20050328
  Serious: Yes (Other)
  Sender: FDA-Public Use
  Company Number: GB-MERCK-0410GBR00247

PATIENT
  Age: 55 Year
  Sex: Male

DRUGS (4)
  1. ZETIA [Suspect]
     Indication: HEART TRANSPLANT
     Route: 048
     Dates: start: 20040315
  2. CYCLOSPORINE [Concomitant]
     Route: 065
  3. AMLODIPINE BESYLATE [Concomitant]
     Route: 065
  4. AZATHIOPRINE [Concomitant]
     Route: 065

REACTIONS (1)
  - AMNESIA [None]
